FAERS Safety Report 11394054 (Version 1)
Quarter: 2015Q3

REPORT INFORMATION
  Report Type: Spontaneous
  Country: US (occurrence: US)
  Receive Date: 20150819
  Receipt Date: 20150819
  Transmission Date: 20151125
  Serious: No
  Sender: FDA-Public Use
  Company Number: US-ASTRAZENECA-2015SE77517

PATIENT
  Age: 24086 Day
  Sex: Male
  Weight: 79.8 kg

DRUGS (4)
  1. BYDUREON [Suspect]
     Active Substance: EXENATIDE
     Indication: TYPE 2 DIABETES MELLITUS
     Route: 058
     Dates: start: 20150807
  2. LEVEMIR [Concomitant]
     Active Substance: INSULIN DETEMIR
     Dosage: TWO TIMES A DAY, 25 UNITS IN THE MORNING AND 10 UNITS AT NIGHT
  3. INSULIN [Concomitant]
     Active Substance: INSULIN NOS
  4. NOVOLOG [Concomitant]
     Active Substance: INSULIN ASPART

REACTIONS (4)
  - Injection site pain [Unknown]
  - Underdose [Unknown]
  - Product quality issue [Unknown]
  - Injection site mass [Unknown]

NARRATIVE: CASE EVENT DATE: 20150807
